FAERS Safety Report 10524500 (Version 1)
Quarter: 2014Q4

REPORT INFORMATION
  Report Type: Spontaneous
  Country: US (occurrence: None)
  Receive Date: 20141015
  Receipt Date: 20141015
  Transmission Date: 20150528
  Serious: Yes (Disabling, Other)
  Sender: FDA-Public Use
  Company Number: None

PATIENT
  Age: 27 Year
  Sex: Female
  Weight: 54.43 kg

DRUGS (6)
  1. CIPRO [Suspect]
     Active Substance: CIPROFLOXACIN HYDROCHLORIDE
     Indication: KIDNEY INFECTION
     Dosage: TWICE DAILY BY MOUTH
     Route: 048
  2. CIPRO [Suspect]
     Active Substance: CIPROFLOXACIN HYDROCHLORIDE
     Indication: STAPHYLOCOCCAL INFECTION
     Dosage: TWICE DAILY BY MOUTH
     Route: 048
  3. LEVAQUIN [Suspect]
     Active Substance: LEVOFLOXACIN
     Indication: INTRAOPERATIVE CARE
     Dosage: INTO A VEIN
  4. CIPRO [Suspect]
     Active Substance: CIPROFLOXACIN HYDROCHLORIDE
     Indication: URINARY TRACT INFECTION
     Dosage: TWICE DAILY BY MOUTH
     Route: 048
  5. LEVAQUIN [Suspect]
     Active Substance: LEVOFLOXACIN
     Indication: INFECTION PROPHYLAXIS
     Dosage: INTO A VEIN
  6. LEVAQUIN [Suspect]
     Active Substance: LEVOFLOXACIN
     Indication: URINARY TRACT INFECTION
     Dosage: INTO A VEIN

REACTIONS (10)
  - Paraesthesia [None]
  - Burning sensation [None]
  - Erythema [None]
  - Swelling [None]
  - Pathogen resistance [None]
  - Pain in extremity [None]
  - Movement disorder [None]
  - Rash [None]
  - Bedridden [None]
  - Hypoaesthesia [None]

NARRATIVE: CASE EVENT DATE: 20140301
